FAERS Safety Report 12641221 (Version 5)
Quarter: 2020Q1

REPORT INFORMATION
  Report Type: Spontaneous
  Country: US (occurrence: US)
  Receive Date: 20160810
  Receipt Date: 20200110
  Transmission Date: 20200409
  Serious: Yes (Hospitalization)
  Sender: FDA-Public Use
  Company Number: US-PFIZER INC-2016350259

PATIENT
  Age: 64 Year
  Sex: Male
  Weight: 88.45 kg

DRUGS (2)
  1. RAPAMUNE [Suspect]
     Active Substance: SIROLIMUS
     Indication: LIVER TRANSPLANT
     Dosage: 1 MG, 1X/DAY (DAILY)
     Route: 048
     Dates: start: 2010
  2. RAPAMUNE [Suspect]
     Active Substance: SIROLIMUS
     Indication: LIVER TRANSPLANT REJECTION
     Dosage: 20 MG, DAILY

REACTIONS (3)
  - Product use in unapproved indication [Unknown]
  - Drug level increased [Recovered/Resolved]
  - Off label use [Unknown]
